FAERS Safety Report 25718689 (Version 2)
Quarter: 2025Q3

REPORT INFORMATION
  Report Type: Spontaneous
  Country: US (occurrence: US)
  Receive Date: 20250823
  Receipt Date: 20250915
  Transmission Date: 20251020
  Serious: Yes (Other)
  Sender: SANOFI AVENTIS
  Company Number: US-SA-2025SA249245

PATIENT
  Age: 72 Year
  Sex: Male
  Weight: 85.45 kg

DRUGS (6)
  1. DUPIXENT [Suspect]
     Active Substance: DUPILUMAB
     Indication: Nasal polyps
     Dosage: 300 MG, QOW
     Route: 058
     Dates: start: 202410, end: 2025
  2. BUTRANS [Concomitant]
     Active Substance: BUPRENORPHINE
  3. GABAPENTIN [Concomitant]
     Active Substance: GABAPENTIN
  4. LISINOPRIL [Concomitant]
     Active Substance: LISINOPRIL
  5. ATORVASTATIN CALCIUM [Concomitant]
     Active Substance: ATORVASTATIN CALCIUM
  6. METOPROLOL TARTRATE [Concomitant]
     Active Substance: METOPROLOL TARTRATE

REACTIONS (4)
  - Adenoid cystic carcinoma [Recovering/Resolving]
  - Sinus congestion [Recovering/Resolving]
  - Nasal discomfort [Recovering/Resolving]
  - Polypectomy [Recovering/Resolving]

NARRATIVE: CASE EVENT DATE: 20250601
